FAERS Safety Report 24080497 (Version 6)
Quarter: 2024Q4

REPORT INFORMATION
  Report Type: Spontaneous
  Country: US (occurrence: US)
  Receive Date: 20240711
  Receipt Date: 20241220
  Transmission Date: 20250115
  Serious: No
  Sender: PHARMING GROUP
  Company Number: US-PHARMING-PHAUS2024000530

PATIENT

DRUGS (5)
  1. RUCONEST [Suspect]
     Active Substance: CONESTAT ALFA
     Indication: Hereditary angioedema
     Dosage: 4200 IU, ONCE WEEKLY
     Route: 042
     Dates: start: 20201111
  2. RUCONEST [Suspect]
     Active Substance: CONESTAT ALFA
     Dosage: 4200 IU, BEFORE EVERY IVIG INFUSION AT DAY TWO OF THE CYCLE EVERY THREE WEEKS, THEN 4200 IU TWICE WE
     Route: 042
     Dates: start: 20201111
  3. RUCONEST [Suspect]
     Active Substance: CONESTAT ALFA
     Dosage: 4200 IU, BEFORE EVERY IVIG INFUSION AT DAY TWO OF THE CYCLE EVERY THREE WEEKS, THEN 4200 IU TWICE WE
     Route: 042
     Dates: start: 20201111
  4. RUCONEST [Suspect]
     Active Substance: CONESTAT ALFA
     Dosage: 4200 IU, BEFORE EVERY IVIG INFUSION AT DAY TWO OF THE CYCLE EVERY THREE WEEKS, THEN 4200 IU TWICE WE
     Route: 042
     Dates: start: 202011
  5. TAKHZYRO [Concomitant]
     Active Substance: LANADELUMAB-FLYO
     Indication: Product used for unknown indication

REACTIONS (4)
  - Condition aggravated [Unknown]
  - Weight fluctuation [Unknown]
  - Intentional product use issue [Unknown]
  - Product use in unapproved indication [Unknown]
